FAERS Safety Report 8249848 (Version 4)
Quarter: 2012Q4

REPORT INFORMATION
  Report Type: 
  Country: DE (occurrence: DE)
  Receive Date: 20111117
  Receipt Date: 20121115
  Transmission Date: 20130627
  Serious: Yes (Other)
  Sender: FDA-Public Use
  Company Number: DE-ALLERGAN-1114661US

PATIENT
  Age: 63 Year
  Sex: Female

DRUGS (3)
  1. OZURDEX [Suspect]
     Indication: MACULAR EDEMA
     Dosage: 0.7 mg, single
     Route: 031
     Dates: start: 201101, end: 201112
  2. OZURDEX [Suspect]
     Dosage: 0.7 mg, single
     Route: 031
     Dates: start: 201103, end: 201103
  3. OZURDEX [Suspect]
     Dosage: 0.7 mg, single
     Route: 031
     Dates: start: 201110, end: 201110

REACTIONS (11)
  - Iris neovascularisation [Unknown]
  - Macular ischaemia [Unknown]
  - Macular oedema [Unknown]
  - Lens disorder [Unknown]
  - Corneal decompensation [Unknown]
  - Glaucoma [Unknown]
  - Visual impairment [Recovered/Resolved]
  - Complication of device insertion [Unknown]
  - Cataract subcapsular [Recovered/Resolved]
  - Lenticular opacities [Recovered/Resolved]
  - Intraocular pressure increased [Recovered/Resolved]
